FAERS Safety Report 4297979-8 (Version None)
Quarter: 2004Q1

REPORT INFORMATION
  Report Type: 
  Country: None (occurrence: None)
  Receive Date: 20040218
  Receipt Date: 20001222
  Transmission Date: 20041129
  Serious: Yes (Other)
  Sender: FDA-Public Use
  Company Number: US-BRISTOL-MYERS SQUIBB COMPANY-10660827

PATIENT
  Sex: Male

DRUGS (8)
  1. STADOL [Suspect]
     Indication: BACK PAIN
     Route: 045
     Dates: start: 19770101, end: 19840101
  2. STADOL [Suspect]
     Indication: BACK INJURY
     Route: 045
     Dates: start: 19770101, end: 19840101
  3. STADOL [Suspect]
     Route: 030
  4. DEMEROL [Concomitant]
     Route: 030
  5. VALIUM [Concomitant]
  6. KLONOPIN [Concomitant]
  7. ELAVIL [Concomitant]
  8. PHENERGAN [Concomitant]
     Indication: NAUSEA

REACTIONS (2)
  - DEPENDENCE [None]
  - DRUG WITHDRAWAL SYNDROME [None]
